FAERS Safety Report 4953023-8 (Version None)
Quarter: 2006Q1

REPORT INFORMATION
  Report Type: 
  Country: None (occurrence: None)
  Receive Date: 20060324
  Receipt Date: 20060313
  Transmission Date: 20060701
  Serious: Yes (Other)
  Sender: FDA-Public Use
  Company Number: FR-GLAXOSMITHKLINE-B0416061A

PATIENT
  Sex: Female

DRUGS (6)
  1. AVANDIA [Suspect]
     Indication: DIABETES MELLITUS NON-INSULIN-DEPENDENT
     Dosage: 8MG PER DAY
     Route: 048
     Dates: start: 20040201
  2. AMARYL [Concomitant]
     Indication: DIABETES MELLITUS
     Route: 048
  3. GLUCOPHAGE [Concomitant]
     Indication: DIABETES MELLITUS
     Route: 048
  4. TAHOR [Concomitant]
     Indication: DYSLIPIDAEMIA
     Route: 048
  5. TAREG [Concomitant]
     Indication: HYPERTENSION
     Route: 048
  6. TIMOPTIC [Concomitant]
     Indication: GLAUCOMA
     Route: 047

REACTIONS (3)
  - ANAEMIA [None]
  - NEUTROPENIA [None]
  - VISION BLURRED [None]
